FAERS Safety Report 21382062 (Version 2)
Quarter: 2022Q4

REPORT INFORMATION
  Report Type: Spontaneous
  Country: US (occurrence: US)
  Receive Date: 20220927
  Receipt Date: 20221003
  Transmission Date: 20230113
  Serious: Yes (Other)
  Sender: FDA-Public Use
  Company Number: US-NOVARTISPH-NVSC2022US215399

PATIENT
  Sex: Male

DRUGS (9)
  1. CEFTRIAXONE [Suspect]
     Active Substance: CEFTRIAXONE
     Indication: Foetal exposure during pregnancy
     Dosage: MATERNAL DOSE DURING PREGNANCY: UNK
     Route: 064
  2. AZITHROMYCIN [Suspect]
     Active Substance: AZITHROMYCIN
     Indication: Foetal exposure during pregnancy
     Dosage: MATERNAL DOSE DURING PREGNANCY: UNK
     Route: 064
  3. ARGATROBAN [Suspect]
     Active Substance: ARGATROBAN
     Indication: Foetal exposure during pregnancy
     Dosage: MATERNAL DOSE DURING PREGNANCY: UNK
     Route: 064
  4. DEXAMETHASONE [Suspect]
     Active Substance: DEXAMETHASONE
     Indication: Foetal exposure during pregnancy
     Dosage: MATERNAL DOSE DURING PREGNANCY: UNK
     Route: 064
  5. HYDROMORPHONE [Suspect]
     Active Substance: HYDROMORPHONE
     Indication: Foetal exposure during pregnancy
     Dosage: MATERNAL DOSE DURING PREGNANCY: UNK
     Route: 064
  6. DEXMEDETOMIDINE [Suspect]
     Active Substance: DEXMEDETOMIDINE
     Indication: Foetal exposure during pregnancy
     Dosage: MATERNAL DOSE DURING PREGNANCY: UNK
     Route: 064
  7. PROPOFOL [Suspect]
     Active Substance: PROPOFOL
     Indication: Foetal exposure during pregnancy
     Dosage: MATERNAL DOSE DURING PREGNANCY: UNK
     Route: 064
  8. NITRIC OXIDE [Suspect]
     Active Substance: NITRIC OXIDE
     Indication: Foetal exposure during pregnancy
     Dosage: MATERNAL DOSE DURING PREGNANCY: UNK
     Route: 064
  9. HEPARIN [Suspect]
     Active Substance: HEPARIN SODIUM
     Indication: Foetal exposure during pregnancy
     Dosage: MATERNAL DOSE DURING PREGNANCY: UNK
     Route: 064

REACTIONS (3)
  - Respiratory distress [Recovered/Resolved]
  - Foetal heart rate deceleration abnormality [Unknown]
  - Foetal exposure during pregnancy [Unknown]
